FAERS Safety Report 11113188 (Version 1)
Quarter: 2015Q2

REPORT INFORMATION
  Report Type: Spontaneous
  Country: US (occurrence: None)
  Receive Date: 20150504
  Receipt Date: 20150504
  Transmission Date: 20150821
  Serious: Yes (Hospitalization, Other)
  Sender: FDA-Public Use
  Company Number: 1418244

PATIENT
  Age: 35 Year
  Sex: Male

DRUGS (4)
  1. OXALIPLATIN (OXALIPLATIN) [Concomitant]
     Active Substance: OXALIPLATIN
  2. FOLINIC ACID (FOLINIC ACID) [Concomitant]
     Active Substance: LEUCOVORIN
  3. 5-FU (FLUOROURACIL) [Concomitant]
     Active Substance: FLUOROURACIL
  4. AVASTIN [Suspect]
     Active Substance: BEVACIZUMAB
     Indication: COLORECTAL CANCER

REACTIONS (1)
  - Visual impairment [None]
